FAERS Safety Report 15041715 (Version 1)
Quarter: 2018Q2

REPORT INFORMATION
  Report Type: Spontaneous
  Country: US (occurrence: US)
  Receive Date: 20180621
  Receipt Date: 20180621
  Transmission Date: 20180711
  Serious: Yes (Other)
  Sender: FDA-Public Use
  Company Number: US-ROCHE-2137783

PATIENT
  Sex: Female

DRUGS (8)
  1. ACTEMRA [Suspect]
     Active Substance: TOCILIZUMAB
     Indication: RHEUMATOID ARTHRITIS
     Route: 065
     Dates: start: 2018
  2. HUMIRA [Suspect]
     Active Substance: ADALIMUMAB
     Indication: RHEUMATOID ARTHRITIS
     Dosage: TREATMENT LENGTH: 15 YEARS AGO 2 OR 3 YEARS. DISCONTINUED DUE TO INEFFECTIVE
     Route: 065
     Dates: start: 2003
  3. ORENCIA [Suspect]
     Active Substance: ABATACEPT
     Indication: RHEUMATOID ARTHRITIS
     Route: 065
     Dates: start: 201802
  4. METHOTREXATE. [Concomitant]
     Active Substance: METHOTREXATE
     Indication: RHEUMATOID ARTHRITIS
     Dosage: TREATMENT LENGTH: 15 YEARS TO CURRENT
     Route: 065
     Dates: start: 2003
  5. ENBREL [Suspect]
     Active Substance: ETANERCEPT
     Indication: RHEUMATOID ARTHRITIS
     Dosage: TREATMENT LENGTH: 12 YEARS AGO 2 OR 3 YEARS. DISCONTINUED DUE TO INEFFECTIVE
     Route: 065
     Dates: start: 2006
  6. FOLIC ACID. [Concomitant]
     Active Substance: FOLIC ACID
  7. XELJANZ [Concomitant]
     Active Substance: TOFACITINIB CITRATE
     Indication: RHEUMATOID ARTHRITIS
     Dosage: TREATMENT LENGTH: 1 MONTH AND DISCONTINUED DUE TO INSURANCE
     Route: 048
  8. PLAQUENIL [Concomitant]
     Active Substance: HYDROXYCHLOROQUINE SULFATE

REACTIONS (8)
  - Drug intolerance [Unknown]
  - Intervertebral disc degeneration [Unknown]
  - Alopecia [Unknown]
  - Drug ineffective [Unknown]
  - Gingival bleeding [Unknown]
  - Ligament laxity [Unknown]
  - Musculoskeletal disorder [Unknown]
  - Myalgia [Unknown]
